FAERS Safety Report 5149378-4 (Version None)
Quarter: 2006Q4

REPORT INFORMATION
  Report Type: 
  Country: None (occurrence: None)
  Receive Date: 20061113
  Receipt Date: 20051207
  Transmission Date: 20070319
  Serious: No
  Sender: FDA-Public Use
  Company Number: 427753

PATIENT
  Age: 81 Year
  Sex: Male

DRUGS (5)
  1. COREG [Suspect]
     Dosage: 12.5MG TWICE PER DAY
     Route: 048
  2. NEURONTIN [Concomitant]
  3. LASIX [Concomitant]
  4. COUMADIN [Concomitant]
  5. ZOCOR [Concomitant]

REACTIONS (2)
  - DIZZINESS [None]
  - HEADACHE [None]
